FAERS Safety Report 7830909-8 (Version None)
Quarter: 2011Q4

REPORT INFORMATION
  Report Type: 
  Country: None (occurrence: None)
  Receive Date: 20111021
  Receipt Date: 20111019
  Transmission Date: 20120403
  Serious: No
  Sender: FDA-Public Use
  Company Number: US-PFIZER INC-2011252609

PATIENT
  Sex: Female

DRUGS (3)
  1. DONEPEZIL [Concomitant]
     Indication: DEMENTIA ALZHEIMER'S TYPE
     Dosage: UNK
  2. IBUPROFEN (ADVIL) [Suspect]
     Indication: PAIN IN EXTREMITY
     Dosage: 200 MG, AS NEEDED
     Route: 048
     Dates: start: 20111001, end: 20111001
  3. IBUPROFEN (ADVIL) [Suspect]
     Dosage: 200 MG, AS NEEDED
     Route: 048
     Dates: start: 20111001

REACTIONS (1)
  - PARAESTHESIA [None]
